FAERS Safety Report 14870204 (Version 1)
Quarter: 2018Q2

REPORT INFORMATION
  Report Type: Spontaneous
  Country: US (occurrence: US)
  Receive Date: 20180509
  Receipt Date: 20180509
  Transmission Date: 20180711
  Serious: No
  Sender: FDA-Public Use
  Company Number: US-SA-2018SA120423

PATIENT

DRUGS (1)
  1. XYZAL ALLERGY 24HR [Suspect]
     Active Substance: LEVOCETIRIZINE DIHYDROCHLORIDE
     Route: 065

REACTIONS (7)
  - Somnolence [Unknown]
  - Asthenia [Unknown]
  - Nasal congestion [Unknown]
  - Weight increased [Unknown]
  - Sinus pain [Unknown]
  - Fatigue [Unknown]
  - Oropharyngeal pain [Unknown]
